FAERS Safety Report 23438092 (Version 1)
Quarter: 2024Q1

REPORT INFORMATION
  Report Type: Report from Study
  Country: IT (occurrence: IT)
  Receive Date: 20240124
  Receipt Date: 20240124
  Transmission Date: 20240410
  Serious: Yes (Hospitalization)
  Sender: FDA-Public Use
  Company Number: None

PATIENT
  Age: 89 Year
  Sex: Male

DRUGS (1)
  1. RIVAROXABAN [Suspect]
     Active Substance: RIVAROXABAN
     Indication: Product used for unknown indication
     Dosage: 20 MG, QD
     Route: 048

REACTIONS (6)
  - Abdominal pain [Unknown]
  - Abdominal tenderness [Unknown]
  - Speech disorder [Unknown]
  - Headache [Unknown]
  - Hypertension [Unknown]
  - Facial paresis [Unknown]

NARRATIVE: CASE EVENT DATE: 20231008
